FAERS Safety Report 18043867 (Version 1)
Quarter: 2020Q3

REPORT INFORMATION
  Report Type: Spontaneous
  Country: US (occurrence: US)
  Receive Date: 20200718
  Receipt Date: 20200718
  Transmission Date: 20201103
  Serious: No
  Sender: FDA-Public Use
  Company Number: None

PATIENT
  Age: 55 Year
  Sex: Female
  Weight: 50.7 kg

DRUGS (1)
  1. RITUXAN [Suspect]
     Active Substance: RITUXIMAB
     Indication: MULTIPLE SCLEROSIS
     Dosage: ?          OTHER FREQUENCY:Q 2 WEEKS X2 2X/YR;?
     Route: 041
     Dates: start: 20170907

REACTIONS (3)
  - Therapy cessation [None]
  - Infusion related reaction [None]
  - Throat irritation [None]

NARRATIVE: CASE EVENT DATE: 20200709
